FAERS Safety Report 4599537-4 (Version None)
Quarter: 2005Q1

REPORT INFORMATION
  Report Type: 
  Country: None (occurrence: None)
  Receive Date: 20050307
  Receipt Date: 20050228
  Transmission Date: 20050727
  Serious: Yes (Disabling)
  Sender: FDA-Public Use
  Company Number: US-GLAXOSMITHKLINE-A0547605A

PATIENT
  Age: 35 Year
  Sex: Female

DRUGS (2)
  1. LAMICTAL [Suspect]
     Indication: BIPOLAR DISORDER
     Route: 048
     Dates: start: 20041222
  2. FLAGYL [Concomitant]

REACTIONS (15)
  - AGITATION [None]
  - ANTISOCIAL BEHAVIOUR [None]
  - BREAST PAIN [None]
  - CHEST PAIN [None]
  - CRYING [None]
  - DISSOCIATION [None]
  - EMOTIONAL DISORDER [None]
  - HEADACHE [None]
  - HYPOVENTILATION [None]
  - IRRITABILITY [None]
  - MYALGIA [None]
  - PAIN [None]
  - PSYCHIATRIC SYMPTOM [None]
  - RESPIRATORY RATE INCREASED [None]
  - TREMOR [None]
